FAERS Safety Report 23799661 (Version 10)
Quarter: 2024Q3

REPORT INFORMATION
  Report Type: Spontaneous
  Country: BE (occurrence: BE)
  Receive Date: 20240430
  Receipt Date: 20240807
  Transmission Date: 20241017
  Serious: Yes (Other)
  Sender: JOHNSON AND JOHNSON
  Company Number: BE-VIIV HEALTHCARE LIMITED-BE2024EME053077

PATIENT
  Age: 34 Year
  Sex: Male

DRUGS (3)
  1. RILPIVIRINE [Suspect]
     Active Substance: RILPIVIRINE
     Indication: Product used for unknown indication
     Dosage: UNK (900 MG/3 ML)
     Route: 065
  2. RILPIVIRINE [Suspect]
     Active Substance: RILPIVIRINE
     Dosage: UNK (900 MG/3 ML)
     Route: 065
  3. VOCABRIA [Suspect]
     Active Substance: CABOTEGRAVIR SODIUM
     Indication: Product used for unknown indication
     Dosage: UNK (600 MG/3 ML)
     Route: 065

REACTIONS (10)
  - Tachycardia [Unknown]
  - Ill-defined disorder [Unknown]
  - Blood pressure decreased [Unknown]
  - Feeling hot [Unknown]
  - Dyspnoea [Unknown]
  - Back pain [Unknown]
  - Discomfort [Unknown]
  - Flushing [Unknown]
  - Malaise [Unknown]
  - Product complaint [Unknown]
